FAERS Safety Report 25705665 (Version 1)
Quarter: 2025Q3

REPORT INFORMATION
  Report Type: Spontaneous
  Country: CN (occurrence: CN)
  Receive Date: 20250820
  Receipt Date: 20250820
  Transmission Date: 20251021
  Serious: Yes (Other)
  Sender: BRACCO
  Company Number: CN-BRACCO-2025CN05566

PATIENT
  Age: 19 Year
  Sex: Male

DRUGS (1)
  1. GADOBENATE DIMEGLUMINE [Suspect]
     Active Substance: GADOBENATE DIMEGLUMINE
     Indication: Imaging procedure
     Route: 042
     Dates: start: 20250730, end: 20250730

REACTIONS (2)
  - Vomiting [Recovering/Resolving]
  - Hypoaesthesia [Recovering/Resolving]

NARRATIVE: CASE EVENT DATE: 20250730
